FAERS Safety Report 9999110 (Version 1)
Quarter: 2014Q1

REPORT INFORMATION
  Report Type: Spontaneous
  Country: US (occurrence: None)
  Receive Date: 20140311
  Receipt Date: 20140311
  Transmission Date: 20141002
  Serious: Yes (Other)
  Sender: FDA-Public Use
  Company Number: None

PATIENT
  Age: 70 Year
  Sex: Female
  Weight: 92 kg

DRUGS (1)
  1. ENALAPRIL [Suspect]
     Indication: HYPERTENSION
     Dosage: 1, ONCE DAILY TAKEN BY MOUTH
     Route: 048
     Dates: start: 20140217, end: 20140223

REACTIONS (4)
  - Product substitution issue [None]
  - Dizziness [None]
  - Insomnia [None]
  - Fatigue [None]
